FAERS Safety Report 17024809 (Version 2)
Quarter: 2020Q1

REPORT INFORMATION
  Report Type: Report from Study
  Country: CO (occurrence: CO)
  Receive Date: 20191113
  Receipt Date: 20200204
  Transmission Date: 20200409
  Serious: Yes (Other)
  Sender: FDA-Public Use
  Company Number: PHHY2014CO123787

PATIENT
  Age: 53 Year
  Sex: Female

DRUGS (2)
  1. CRANBERRY. [Concomitant]
     Active Substance: CRANBERRY
     Indication: ASYMPTOMATIC BACTERIURIA
     Dosage: UNK
     Route: 065
     Dates: start: 20141024
  2. GILENYA [Suspect]
     Active Substance: FINGOLIMOD HYDROCHLORIDE
     Indication: MULTIPLE SCLEROSIS
     Dosage: 0.5 MG, QD
     Route: 048
     Dates: start: 20140505

REACTIONS (9)
  - Lymphocyte count decreased [Unknown]
  - Spinal pain [Not Recovered/Not Resolved]
  - Constipation [Recovered/Resolved]
  - Low density lipoprotein increased [Unknown]
  - Back pain [Not Recovered/Not Resolved]
  - High density lipoprotein increased [Unknown]
  - Blood triglycerides increased [Not Recovered/Not Resolved]
  - White blood cell count decreased [Unknown]
  - Blood cholesterol increased [Unknown]

NARRATIVE: CASE EVENT DATE: 20140916
